FAERS Safety Report 10958399 (Version 2)
Quarter: 2015Q2

REPORT INFORMATION
  Report Type: Spontaneous
  Country: BR (occurrence: BR)
  Receive Date: 20150326
  Receipt Date: 20150409
  Transmission Date: 20150821
  Serious: Yes (Other)
  Sender: FDA-Public Use
  Company Number: PHHY2015BR035306

PATIENT
  Age: 25 Year
  Sex: Female
  Weight: 74 kg

DRUGS (2)
  1. RITALIN [Suspect]
     Active Substance: METHYLPHENIDATE HYDROCHLORIDE
     Indication: DYSLEXIA
     Dosage: UNK UKN, UNK
     Route: 065
  2. RITALIN [Suspect]
     Active Substance: METHYLPHENIDATE HYDROCHLORIDE
     Indication: ATTENTION DEFICIT/HYPERACTIVITY DISORDER
     Dosage: 1 DF, BID (ONE TABLET AT 1 PM AND ANOTHER ONE AT 6 PM)
     Route: 065
     Dates: start: 20150318, end: 20150318

REACTIONS (12)
  - Tongue pruritus [Recovered/Resolved]
  - Food allergy [Recovered/Resolved]
  - Dyspnoea [Recovered/Resolved]
  - Pharyngeal hypoaesthesia [Recovered/Resolved]
  - Headache [Recovered/Resolved]
  - Respiratory arrest [Recovered/Resolved]
  - Local swelling [Recovered/Resolved]
  - Throat irritation [Recovered/Resolved]
  - Product use issue [Unknown]
  - Mouth swelling [Recovered/Resolved]
  - Pruritus generalised [Recovered/Resolved]
  - Hypoaesthesia oral [Recovered/Resolved]

NARRATIVE: CASE EVENT DATE: 20150318
